FAERS Safety Report 5009660-8 (Version None)
Quarter: 2006Q2

REPORT INFORMATION
  Report Type: 
  Country: None (occurrence: None)
  Receive Date: 20060524
  Receipt Date: 20060517
  Transmission Date: 20061013
  Serious: Yes (Hospitalization)
  Sender: FDA-Public Use
  Company Number: FR-GLAXOSMITHKLINE-B0424688A

PATIENT
  Age: 42 Year
  Sex: Female

DRUGS (4)
  1. MALARONE [Suspect]
     Indication: MALARIA PROPHYLAXIS
     Dosage: 1TAB PER DAY
     Route: 048
     Dates: start: 20060127, end: 20060217
  2. COARTEM [Suspect]
     Indication: MALARIA
     Dosage: 8UNIT PER DAY
     Route: 048
     Dates: start: 20060208, end: 20060210
  3. CIFLOX [Suspect]
     Indication: TRICHOMONIASIS
     Dosage: 500MG TWICE PER DAY
     Route: 048
     Dates: start: 20060211, end: 20060217
  4. FLAGYL [Suspect]
     Indication: TRICHOMONIASIS
     Dosage: 500MG THREE TIMES PER DAY
     Route: 048
     Dates: start: 20060212, end: 20060221

REACTIONS (6)
  - ABDOMINAL PAIN [None]
  - DIARRHOEA [None]
  - HEPATOCELLULAR DAMAGE [None]
  - HEPATOMEGALY [None]
  - MALARIA [None]
  - PYREXIA [None]
